FAERS Safety Report 8390768-4 (Version None)
Quarter: 2012Q2

REPORT INFORMATION
  Report Type: 
  Country: None (occurrence: None)
  Receive Date: 20120529
  Receipt Date: 20120522
  Transmission Date: 20120825
  Serious: Yes (Hospitalization, Other)
  Sender: FDA-Public Use
  Company Number: US-BAYER-2011-081743

PATIENT
  Age: 27 Year
  Sex: Female
  Weight: 98.413 kg

DRUGS (7)
  1. YASMIN [Suspect]
     Indication: DYSFUNCTIONAL UTERINE BLEEDING
     Dosage: UNK
     Dates: start: 20030411, end: 20031101
  2. PROVENTIL [Concomitant]
     Indication: ASTHMA
     Dosage: UNK UNK, PRN
     Route: 045
     Dates: start: 20080924
  3. ALBUTEROL [Concomitant]
     Indication: ASTHMA
     Route: 042
  4. IRON [Concomitant]
     Indication: ANAEMIA
     Dosage: UNK
     Dates: start: 20080924
  5. YASMIN [Suspect]
     Indication: MENORRHAGIA
     Dosage: UNK
     Dates: start: 20040312, end: 20050128
  6. YASMIN [Suspect]
     Indication: CONTRACEPTION
     Dosage: UNK
     Dates: start: 20060314, end: 20080831
  7. CALCIUM CARBONATE [Concomitant]
     Dosage: 125 MG, QD
     Route: 048

REACTIONS (9)
  - PAIN [None]
  - CHEST PAIN [None]
  - ANXIETY [None]
  - PULMONARY EMBOLISM [None]
  - INJURY [None]
  - EMOTIONAL DISTRESS [None]
  - DYSPNOEA [None]
  - PULMONARY FIBROSIS [None]
  - GENERAL PHYSICAL HEALTH DETERIORATION [None]
